FAERS Safety Report 13671161 (Version 1)
Quarter: 2017Q2

REPORT INFORMATION
  Report Type: Spontaneous
  Country: US (occurrence: US)
  Receive Date: 20170620
  Receipt Date: 20170620
  Transmission Date: 20170830
  Serious: No
  Sender: FDA-Public Use
  Company Number: US-ROCHE-1127388

PATIENT
  Sex: Female

DRUGS (1)
  1. XELODA [Suspect]
     Active Substance: CAPECITABINE
     Indication: BREAST CANCER
     Dosage: TWO 500 MG IN THE MORNING AND TWO 500 MG IN THE EVENING
     Route: 065

REACTIONS (5)
  - Rash [Unknown]
  - Peripheral swelling [Unknown]
  - Arthralgia [Unknown]
  - Erythema [Unknown]
  - Gait disturbance [Unknown]
